FAERS Safety Report 6616591-6 (Version None)
Quarter: 2010Q1

REPORT INFORMATION
  Report Type: 
  Country: None (occurrence: None)
  Receive Date: 20100305
  Receipt Date: 20100225
  Transmission Date: 20100710
  Serious: Yes (Other)
  Sender: FDA-Public Use
  Company Number: PHHY2010JP11485

PATIENT
  Age: 77 Year
  Sex: Female

DRUGS (5)
  1. DIOVAN [Suspect]
     Indication: HYPERTENSION
     Dosage: 40 MG DAILY
     Route: 048
     Dates: start: 20100217, end: 20100220
  2. PICILLIBACTA [Suspect]
     Indication: HYPERTENSION
     Dosage: 1.5 G, UNK
     Route: 042
     Dates: start: 20100215, end: 20100220
  3. ASPIRIN [Concomitant]
     Dosage: 100 MG, UNK
     Route: 048
  4. GASTER [Concomitant]
     Dosage: 20 MG, UNK
     Route: 048
  5. MAGMITT KENEI [Concomitant]
     Dosage: 150 MG, UNK
     Route: 048

REACTIONS (1)
  - LIVER DISORDER [None]
